FAERS Safety Report 8289963-4 (Version None)
Quarter: 2012Q2

REPORT INFORMATION
  Report Type: 
  Country: None (occurrence: None)
  Receive Date: 20120417
  Receipt Date: 20120402
  Transmission Date: 20120825
  Serious: Yes (Hospitalization)
  Sender: FDA-Public Use
  Company Number: FR-ROCHE-1056098

PATIENT
  Sex: Male

DRUGS (7)
  1. TRAMADOL HCL [Concomitant]
     Dosage: 100 MG/2 ML
     Route: 042
     Dates: start: 20120117
  2. ACETAMINOPHEN [Concomitant]
     Route: 042
     Dates: start: 20120116
  3. ROCEPHIN [Suspect]
     Indication: STAPHYLOCOCCAL INFECTION
     Route: 042
     Dates: start: 20120112, end: 20120118
  4. OXACILLIN [Suspect]
     Indication: STAPHYLOCOCCAL INFECTION
     Route: 042
     Dates: start: 20120118, end: 20120124
  5. GENTAMICIN [Suspect]
     Indication: STAPHYLOCOCCAL INFECTION
     Route: 042
     Dates: start: 20120119, end: 20120120
  6. LOVENOX [Concomitant]
     Dosage: 4000 IU ANTI-XA/0.4 ML
     Route: 058
     Dates: start: 20120117
  7. DUPHALAC [Concomitant]
     Route: 048
     Dates: start: 20120116

REACTIONS (1)
  - LIVER DISORDER [None]
